FAERS Safety Report 9602188 (Version 1)
Quarter: 2013Q4

REPORT INFORMATION
  Report Type: Spontaneous
  Country: FR (occurrence: FR)
  Receive Date: 20131007
  Receipt Date: 20131007
  Transmission Date: 20140711
  Serious: Yes (Death, Hospitalization, Other)
  Sender: FDA-Public Use
  Company Number: FR-ELI_LILLY_AND_COMPANY-FR201309008036

PATIENT
  Age: 49 Year
  Sex: Female

DRUGS (11)
  1. ZYPREXA [Suspect]
     Dosage: 1 DF, UNKNOWN
  2. LEPTICUR [Suspect]
     Dosage: 1 DF, UNKNOWN
  3. DEPAKOTE [Suspect]
     Dosage: 1 DF, UNKNOWN
  4. PRIMPERAN [Suspect]
     Dosage: 1 DF, UNKNOWN
  5. EFFEXOR [Suspect]
     Dosage: 1 DF, UNKNOWN
  6. LOXAPAC [Suspect]
     Dosage: 1 DF, UNKNOWN
  7. OXYCONTIN [Suspect]
     Dosage: 1 DF, UNKNOWN
  8. OXYNORM [Suspect]
     Dosage: 1 DF, UNKNOWN
  9. LYSANXIA [Concomitant]
     Dosage: 1 DF, UNKNOWN
  10. INNOHEP [Concomitant]
     Dosage: 1 DF, UNKNOWN
  11. ARIMIDEX [Concomitant]
     Dosage: 1 DF, UNKNOWN

REACTIONS (3)
  - Gastrointestinal necrosis [Unknown]
  - Ileus [Fatal]
  - Sepsis [Not Recovered/Not Resolved]
